FAERS Safety Report 25504709 (Version 5)
Quarter: 2025Q3

REPORT INFORMATION
  Report Type: Other
  Country: US (occurrence: US)
  Receive Date: 20250702
  Receipt Date: 20250930
  Transmission Date: 20251020
  Serious: No
  Sender: TRAVERE THERAPEUTICS
  Company Number: US-TRAVERE-2025TVT00890

PATIENT
  Age: 24 Year
  Sex: Female

DRUGS (3)
  1. FILSPARI [Suspect]
     Active Substance: SPARSENTAN
     Indication: IgA nephropathy
     Route: 048
     Dates: start: 20250604
  2. FILSPARI [Suspect]
     Active Substance: SPARSENTAN
     Dosage: 200 MG EVERY OTHER DAY
     Route: 048
     Dates: end: 20250725
  3. FILSPARI [Suspect]
     Active Substance: SPARSENTAN
     Dosage: 200 MG EVERY OTHER DAY
     Route: 048
     Dates: start: 20250825

REACTIONS (15)
  - Nausea [None]
  - Asthenia [Unknown]
  - Memory impairment [Unknown]
  - Brain fog [None]
  - Peripheral swelling [Unknown]
  - Chest discomfort [Unknown]
  - Dyspnoea [Unknown]
  - Joint swelling [Recovering/Resolving]
  - Fatigue [Unknown]
  - Hypotension [None]
  - Feeling abnormal [Unknown]
  - Abdominal pain [Unknown]
  - Chromaturia [Unknown]
  - Off label use [Unknown]
  - Dizziness [Unknown]

NARRATIVE: CASE EVENT DATE: 20250701
